FAERS Safety Report 20367454 (Version 1)
Quarter: 2022Q1

REPORT INFORMATION
  Report Type: Spontaneous
  Country: US (occurrence: US)
  Receive Date: 20220124
  Receipt Date: 20220124
  Transmission Date: 20220423
  Serious: Yes (Other)
  Sender: FDA-Public Use
  Company Number: US-TEVA-2022-US-1999970

PATIENT
  Age: 27 Year
  Sex: Female

DRUGS (30)
  1. TRAMADOL HCL [Suspect]
     Active Substance: TRAMADOL HYDROCHLORIDE
     Indication: Multiple fractures
     Dosage: PRN
     Route: 048
     Dates: start: 19931030
  2. ACETAMINOPHEN\HYDROCODONE [Suspect]
     Active Substance: ACETAMINOPHEN\HYDROCODONE
     Indication: Pain
     Dosage: 2 DOSAGE FORMS DAILY; 7.5/750 MG, IN -2003
     Route: 048
  3. ACETAMINOPHEN\HYDROCODONE [Suspect]
     Active Substance: ACETAMINOPHEN\HYDROCODONE
     Dosage: 7.5/750 MG, IN -2004
     Route: 048
  4. ACETAMINOPHEN\HYDROCODONE [Suspect]
     Active Substance: ACETAMINOPHEN\HYDROCODONE
     Dosage: 10/325 MG , IN -2004 AND -2005
     Route: 048
  5. ACETAMINOPHEN\HYDROCODONE [Suspect]
     Active Substance: ACETAMINOPHEN\HYDROCODONE
     Dosage: 10/325 TAB , IN -2004 AND 2005
     Route: 048
  6. OXYCODONE [Suspect]
     Active Substance: OXYCODONE
     Indication: Multiple fractures
     Route: 048
     Dates: start: 2004, end: 2010
  7. OXYCODONE [Suspect]
     Active Substance: OXYCODONE
     Indication: Pain
  8. ACETAMINOPHEN\HYDROCODONE [Suspect]
     Active Substance: ACETAMINOPHEN\HYDROCODONE
     Indication: Pain
     Dosage: 10/325MG , IN -2004 AND -2005
     Route: 048
  9. ACETAMINOPHEN\HYDROCODONE [Suspect]
     Active Substance: ACETAMINOPHEN\HYDROCODONE
     Dosage: 10/325 MG
     Route: 048
  10. ACETAMINOPHEN\HYDROCODONE [Suspect]
     Active Substance: ACETAMINOPHEN\HYDROCODONE
     Dosage: 48 DOSAGE FORMS DAILY; 10/325 MG , IN -2005 AND -2006
     Route: 048
  11. ACETAMINOPHEN\HYDROCODONE [Suspect]
     Active Substance: ACETAMINOPHEN\HYDROCODONE
     Dosage: 5/500MG, IN -2004
     Route: 048
  12. ACETAMINOPHEN\HYDROCODONE [Suspect]
     Active Substance: ACETAMINOPHEN\HYDROCODONE
     Dosage: 7.5/750 MG, IN -2004
     Route: 048
  13. ACETAMINOPHEN\HYDROCODONE [Suspect]
     Active Substance: ACETAMINOPHEN\HYDROCODONE
     Dosage: 7.5/325 MG , IN -2005
     Route: 048
  14. ACETAMINOPHEN\HYDROCODONE [Suspect]
     Active Substance: ACETAMINOPHEN\HYDROCODONE
     Dosage: 10/325 MG , IN 2004 AND 2005
     Route: 048
  15. NORCO [Suspect]
     Active Substance: ACETAMINOPHEN\HYDROCODONE BITARTRATE
     Indication: Multiple fractures
     Route: 048
     Dates: start: 2004, end: 2010
  16. NORCO [Suspect]
     Active Substance: ACETAMINOPHEN\HYDROCODONE BITARTRATE
     Indication: Pain
  17. OXYCONTIN [Suspect]
     Active Substance: OXYCODONE HYDROCHLORIDE
     Indication: Multiple fractures
     Route: 048
     Dates: start: 2004, end: 2010
  18. OXYCONTIN [Suspect]
     Active Substance: OXYCODONE HYDROCHLORIDE
     Indication: Pain
  19. VICODIN [Suspect]
     Active Substance: ACETAMINOPHEN\HYDROCODONE BITARTRATE
     Indication: Multiple fractures
     Route: 048
     Dates: start: 2004, end: 2010
  20. VICODIN [Suspect]
     Active Substance: ACETAMINOPHEN\HYDROCODONE BITARTRATE
     Indication: Pain
  21. SOMA [Concomitant]
     Active Substance: CARISOPRODOL
     Indication: Pain
     Dates: start: 2004
  22. SOMA [Concomitant]
     Active Substance: CARISOPRODOL
     Indication: Anxiety
  23. METHOTREXATE [Concomitant]
     Active Substance: METHOTREXATE
     Indication: Arthritis
     Dates: start: 2004, end: 2006
  24. PREDNISONE [Concomitant]
     Active Substance: PREDNISONE
     Indication: Arthritis
     Dates: start: 2004, end: 2006
  25. FELDENE [Concomitant]
     Active Substance: PIROXICAM
     Indication: Arthritis
     Dates: start: 2004, end: 2006
  26. ALBUTEROL [Concomitant]
     Active Substance: ALBUTEROL
     Indication: Asthma
     Dates: start: 2004
  27. CELEXA [Concomitant]
     Active Substance: CITALOPRAM HYDROBROMIDE
     Indication: Depression
     Dosage: ON 2005/2006 (TOOK THEM ONLY FOR A FEW WEEKS AND STOPPED)
  28. CELEXA [Concomitant]
     Active Substance: CITALOPRAM HYDROBROMIDE
     Indication: Anxiety
  29. XANAX [Concomitant]
     Active Substance: ALPRAZOLAM
     Indication: Depression
     Dosage: RECENTLY BEGAN TAKING THEM AGAIN AS NEEDED
     Dates: start: 2004, end: 2010
  30. XANAX [Concomitant]
     Active Substance: ALPRAZOLAM
     Indication: Anxiety

REACTIONS (4)
  - Drug dependence [Unknown]
  - Maternal exposure during pregnancy [Unknown]
  - Live birth [Unknown]
  - Weight decreased [Recovered/Resolved]

NARRATIVE: CASE EVENT DATE: 20050915
